FAERS Safety Report 5353342-X (Version None)
Quarter: 2007Q2

REPORT INFORMATION
  Report Type: 
  Country: None (occurrence: None)
  Receive Date: 20070518
  Receipt Date: 20070313
  Transmission Date: 20071010
  Serious: No
  Sender: FDA-Public Use
  Company Number: TPA2007A00605

PATIENT
  Age: 80 Year
  Sex: Female
  Weight: 70.7611 kg

DRUGS (7)
  1. ROZEREM [Suspect]
     Indication: INSOMNIA
     Dosage: 8 MG, HS, PER ORAL
     Route: 048
     Dates: start: 20070305, end: 20070306
  2. HEPARIN [Concomitant]
  3. ZOLOFT [Concomitant]
  4. ANTIVERT(MECLOZINE) [Concomitant]
  5. REGLAN [Concomitant]
  6. NEXIUM [Concomitant]
  7. XANAX [Concomitant]

REACTIONS (1)
  - ASTHENIA [None]
